FAERS Safety Report 25022208 (Version 2)
Quarter: 2025Q2

REPORT INFORMATION
  Report Type: Report from Study
  Country: KR (occurrence: KR)
  Receive Date: 20250228
  Receipt Date: 20250429
  Transmission Date: 20250717
  Serious: Yes (Hospitalization)
  Sender: JOHNSON AND JOHNSON
  Company Number: KR-JNJFOC-20230430831

PATIENT
  Age: 68 Year
  Sex: Female
  Weight: 61.5 kg

DRUGS (9)
  1. LAZERTINIB [Suspect]
     Active Substance: LAZERTINIB
     Indication: Non-small cell lung cancer
     Dosage: QD
     Route: 048
     Dates: start: 20230306, end: 20230326
  2. DIETARY SUPPLEMENT\HERBALS\MILK THISTLE [Concomitant]
     Active Substance: MILK THISTLE
     Indication: Aspartate aminotransferase increased
     Dates: start: 20230327
  3. GODEX [ADENINE HYDROCHLORIDE;BIFENDATE;CARNITINE OROTATE;CYANOCOBALAMI [Concomitant]
     Indication: Aspartate aminotransferase increased
     Route: 048
     Dates: start: 20230327, end: 20230414
  4. CHLORHEXIDINE GLUCONATE [Concomitant]
     Active Substance: CHLORHEXIDINE GLUCONATE
     Indication: Stomatitis
     Route: 048
     Dates: start: 20230327, end: 20230414
  5. KAMISTAD N [Concomitant]
     Indication: Stomatitis
     Dates: start: 20230327, end: 20230414
  6. MUCOBARRIER [Concomitant]
     Indication: Stomatitis
     Route: 048
     Dates: start: 20230327, end: 20230414
  7. LAFUTIDINE [Concomitant]
     Active Substance: LAFUTIDINE
     Indication: Abdominal pain upper
     Route: 048
     Dates: start: 20230327, end: 20230408
  8. XYZAL [Concomitant]
     Active Substance: LEVOCETIRIZINE DIHYDROCHLORIDE
     Indication: Cough
     Route: 048
     Dates: start: 20230320, end: 20230408
  9. ACETAMINOPHEN [Concomitant]
     Active Substance: ACETAMINOPHEN
     Indication: Pain management
     Route: 048
     Dates: start: 20230320, end: 20230410

REACTIONS (1)
  - Hyperbilirubinaemia [Recovered/Resolved with Sequelae]

NARRATIVE: CASE EVENT DATE: 20230403
